FAERS Safety Report 15782579 (Version 1)
Quarter: 2019Q1

REPORT INFORMATION
  Report Type: Spontaneous
  Country: US (occurrence: US)
  Receive Date: 20190102
  Receipt Date: 20190102
  Transmission Date: 20190417
  Serious: No
  Sender: FDA-Public Use
  Company Number: US-BAYER-2018-243091

PATIENT
  Age: 59 Year
  Sex: Female

DRUGS (1)
  1. ULTRAVIST [Suspect]
     Active Substance: IOPROMIDE
     Indication: LIVER DISORDER
     Dosage: UNK
     Route: 042
     Dates: start: 20181221, end: 20181221

REACTIONS (1)
  - Urticaria [None]

NARRATIVE: CASE EVENT DATE: 20181221
